FAERS Safety Report 18759710 (Version 2)
Quarter: 2021Q1

REPORT INFORMATION
  Report Type: Spontaneous
  Country: SE (occurrence: SE)
  Receive Date: 20210120
  Receipt Date: 20210316
  Transmission Date: 20210419
  Serious: Yes (Death, Life-Threatening, Hospitalization)
  Sender: FDA-Public Use
  Company Number: SE-SUN PHARMACEUTICAL INDUSTRIES LTD-2021RR-276002

PATIENT
  Age: 88 Year
  Sex: Male
  Weight: 60 kg

DRUGS (1)
  1. CIPROFLOXACIN. [Suspect]
     Active Substance: CIPROFLOXACIN
     Indication: PNEUMONIA PSEUDOMONAL
     Dosage: 1500 MILLIGRAM, DAILY
     Route: 065

REACTIONS (7)
  - Renal failure [Fatal]
  - Pain [Fatal]
  - Oedema peripheral [Fatal]
  - Dyspnoea [Fatal]
  - Anuria [Fatal]
  - Vomiting [Fatal]
  - Dizziness [Fatal]

NARRATIVE: CASE EVENT DATE: 2020
